FAERS Safety Report 5531771-9 (Version None)
Quarter: 2007Q4

REPORT INFORMATION
  Report Type: 
  Country: None (occurrence: None)
  Receive Date: 20071127
  Receipt Date: 20071127
  Transmission Date: 20080405
  Serious: No
  Sender: FDA-Public Use
  Company Number: None

PATIENT
  Sex: Male

DRUGS (4)
  1. THEOPHYLLINE 300MG EXTENDED RELEASE [Suspect]
     Indication: ASTHMA
     Dosage: 300 MG TABLET TWICE A DAY PO
     Route: 048
     Dates: start: 20070831
  2. ALBUTEROL [Concomitant]
  3. SINGULAIR [Concomitant]
  4. ENALAPRIL [Concomitant]

REACTIONS (1)
  - MEDICATION RESIDUE [None]
